FAERS Safety Report 5828939-0 (Version None)
Quarter: 2008Q3

REPORT INFORMATION
  Report Type: 
  Country: None (occurrence: None)
  Receive Date: 20080731
  Receipt Date: 20080423
  Transmission Date: 20090109
  Serious: No
  Sender: FDA-Public Use
  Company Number: US-BAYER-200811933BCC

PATIENT
  Age: 54 Year
  Sex: Female
  Weight: 100 kg

DRUGS (10)
  1. ALEVE [Suspect]
     Indication: BACK PAIN
     Dosage: AS USED: 220 MG  UNIT DOSE: 220 MG
     Route: 048
     Dates: start: 20080423
  2. TYLENOL [Concomitant]
     Indication: SINUS DISORDER
  3. GLUCOPHAGE [Concomitant]
  4. CESTROL [Concomitant]
  5. SYNTHROID [Concomitant]
  6. LYRICA [Concomitant]
  7. ZOLOFT [Concomitant]
  8. TRAZODONE HCL [Concomitant]
  9. NEXIUM [Concomitant]
  10. METOCLOPRAMIDE [Concomitant]

REACTIONS (1)
  - BACK PAIN [None]
